FAERS Safety Report 14306812 (Version 3)
Quarter: 2018Q1

REPORT INFORMATION
  Report Type: Report from Study
  Country: None (occurrence: US)
  Receive Date: 20171220
  Receipt Date: 20180316
  Transmission Date: 20180509
  Serious: Yes (Other)
  Sender: FDA-Public Use
  Company Number: US-ABBVIE-17K-163-2185576-00

PATIENT
  Age: 71 Year
  Sex: Female

DRUGS (2)
  1. HUMIRA [Suspect]
     Active Substance: ADALIMUMAB
     Indication: PSORIASIS
     Route: 058
     Dates: end: 201704
  2. HUMIRA [Suspect]
     Active Substance: ADALIMUMAB
     Route: 058
     Dates: start: 20171003, end: 201802

REACTIONS (7)
  - Knee arthroplasty [Recovered/Resolved]
  - Drug effect decreased [Unknown]
  - Psoriasis [Unknown]
  - Rotator cuff syndrome [Recovered/Resolved]
  - Urosepsis [Recovered/Resolved]
  - Psoriasis [Unknown]
  - Dental care [Recovered/Resolved]

NARRATIVE: CASE EVENT DATE: 201405
